FAERS Safety Report 16311327 (Version 1)
Quarter: 2019Q2

REPORT INFORMATION
  Report Type: Spontaneous
  Country: BE (occurrence: BE)
  Receive Date: 20190514
  Receipt Date: 20190514
  Transmission Date: 20190711
  Serious: Yes (Other)
  Sender: FDA-Public Use
  Company Number: BE-FRESENIUS KABI-FK201905419

PATIENT
  Age: 40 Year
  Sex: Male

DRUGS (8)
  1. AMIKACIN (MANUFACTURER UNKNOWN) [Suspect]
     Active Substance: AMIKACIN
     Indication: SALVAGE THERAPY
     Dosage: UNKNOWN
     Route: 042
  2. CLARITHROMYCIN. [Suspect]
     Active Substance: CLARITHROMYCIN
     Indication: SALVAGE THERAPY
     Dosage: UNKNOWN
     Route: 048
  3. IMIPENEM (MANUFACTURER UNKNOWN) [Suspect]
     Active Substance: IMIPENEM
     Indication: SALVAGE THERAPY
     Dosage: UNKNOWN
     Route: 042
  4. LINEZOLID (MANUFACTURER UNKNOWN) [Suspect]
     Active Substance: LINEZOLID
     Indication: SALVAGE THERAPY
     Dosage: UNKNOWN
     Route: 065
  5. MOXIFLOXACIN. [Suspect]
     Active Substance: MOXIFLOXACIN
     Indication: SALVAGE THERAPY
     Dosage: UNKNOWN
     Route: 048
  6. CLOFAZIMINE [Suspect]
     Active Substance: CLOFAZIMINE
     Indication: SALVAGE THERAPY
     Dosage: UNKNOWN
     Route: 048
  7. BEDAQUILINE [Suspect]
     Active Substance: BEDAQUILINE
     Indication: SALVAGE THERAPY
     Dosage: UNKNOWN
     Route: 065
  8. TIGECYCLINE (MANUFACTURER UNKNOWN) [Suspect]
     Active Substance: TIGECYCLINE
     Indication: SALVAGE THERAPY
     Dosage: UNKNOWN
     Route: 042

REACTIONS (3)
  - Nausea [Unknown]
  - Hepatotoxicity [Unknown]
  - Vomiting [Unknown]
